FAERS Safety Report 5953998-4 (Version None)
Quarter: 2008Q4

REPORT INFORMATION
  Report Type: 
  Country: None (occurrence: None)
  Receive Date: 20081114
  Receipt Date: 20081104
  Transmission Date: 20090506
  Serious: Yes (Other)
  Sender: FDA-Public Use
  Company Number: US-PFIZER INC-2008094241

PATIENT
  Sex: Female
  Weight: 61.2 kg

DRUGS (4)
  1. CHANTIX [Suspect]
     Indication: SMOKING CESSATION THERAPY
     Dates: start: 20080101
  2. IBUPROFEN TABLETS [Interacting]
     Indication: SYSTEMIC LUPUS ERYTHEMATOSUS
     Dosage: TEXT:800MG TID EVERY DAY TDD:2400MG
     Dates: start: 19900101
  3. HYDROXYCHLOROQUINE SULFATE [Interacting]
     Indication: SYSTEMIC LUPUS ERYTHEMATOSUS
     Dosage: TEXT:EVERY DAY
     Dates: start: 19900101
  4. AMITRIPTYLINE HCL [Interacting]
     Indication: SYSTEMIC LUPUS ERYTHEMATOSUS
     Dosage: TEXT:50MG TID EVERY DAY TDD:50MG
     Dates: start: 19900101

REACTIONS (2)
  - DRUG INTERACTION [None]
  - SYSTEMIC LUPUS ERYTHEMATOSUS [None]
